FAERS Safety Report 10017349 (Version 1)
Quarter: 2014Q1

REPORT INFORMATION
  Report Type: Spontaneous
  Country: IT (occurrence: IT)
  Receive Date: 20140318
  Receipt Date: 20140318
  Transmission Date: 20141002
  Serious: Yes (Other)
  Sender: FDA-Public Use
  Company Number: IT-JNJFOC-20140305205

PATIENT
  Age: 41 Year
  Sex: Female
  Weight: 60 kg

DRUGS (6)
  1. RISPERDAL [Suspect]
     Indication: SELF INJURIOUS BEHAVIOUR
     Route: 048
     Dates: start: 20140307, end: 20140307
  2. QUETIAPINE [Suspect]
     Indication: SELF INJURIOUS BEHAVIOUR
     Route: 048
     Dates: start: 20140307, end: 20140307
  3. CYMBALTA [Suspect]
     Indication: SELF INJURIOUS BEHAVIOUR
     Route: 048
     Dates: start: 20140307, end: 20140307
  4. LORAZEPAM [Suspect]
     Indication: SELF INJURIOUS BEHAVIOUR
     Route: 048
     Dates: start: 20140307, end: 20140307
  5. ABILIFY [Suspect]
     Indication: SELF INJURIOUS BEHAVIOUR
     Route: 048
     Dates: start: 20140307, end: 20140307
  6. DEPAKIN [Suspect]
     Indication: SELF INJURIOUS BEHAVIOUR
     Route: 048
     Dates: start: 20140307, end: 20140307

REACTIONS (4)
  - Intentional self-injury [Unknown]
  - Intentional drug misuse [Unknown]
  - Hypotension [Unknown]
  - Tachycardia [Unknown]
